FAERS Safety Report 15299839 (Version 1)
Quarter: 2018Q3

REPORT INFORMATION
  Report Type: Report from Study
  Country: US (occurrence: US)
  Receive Date: 20180821
  Receipt Date: 20180821
  Transmission Date: 20181010
  Serious: Yes (Other)
  Sender: FDA-Public Use
  Company Number: US-BRISTOL-MYERS SQUIBB COMPANY-BMS-2018-078038

PATIENT
  Age: 35 Year
  Sex: Female

DRUGS (2)
  1. NIVOLUMAB [Suspect]
     Active Substance: NIVOLUMAB
     Indication: PITUITARY TUMOUR BENIGN
     Dosage: 1 MG/KG, Q3WK
     Route: 065
  2. IPILIMUMAB [Suspect]
     Active Substance: IPILIMUMAB
     Indication: PITUITARY TUMOUR BENIGN
     Dosage: 3 MG/KG, Q3WK
     Route: 065

REACTIONS (6)
  - Pyrexia [Recovered/Resolved]
  - Hypophysitis [Unknown]
  - Product use in unapproved indication [Unknown]
  - Transaminases increased [Recovered/Resolved]
  - Hypopituitarism [Unknown]
  - Tumour pseudoprogression [Unknown]
